FAERS Safety Report 18151013 (Version 1)
Quarter: 2020Q3

REPORT INFORMATION
  Report Type: Spontaneous
  Country: US (occurrence: US)
  Receive Date: 20200814
  Receipt Date: 20200814
  Transmission Date: 20201103
  Serious: Yes (Other)
  Sender: FDA-Public Use
  Company Number: US-SUNOVION-2020SUN002310

PATIENT
  Sex: Male
  Weight: 71.2 kg

DRUGS (2)
  1. LATUDA [Suspect]
     Active Substance: LURASIDONE HYDROCHLORIDE
     Dosage: UNK
     Route: 048
  2. LATUDA [Suspect]
     Active Substance: LURASIDONE HYDROCHLORIDE
     Dosage: 20 MG, QD
     Route: 048

REACTIONS (5)
  - Therapeutic response unexpected [Unknown]
  - Suicidal ideation [Recovered/Resolved]
  - Stress [Unknown]
  - Personality change [Unknown]
  - Therapy cessation [Unknown]
